FAERS Safety Report 9267143 (Version 2)
Quarter: 2013Q2

REPORT INFORMATION
  Report Type: Spontaneous
  Country: CO (occurrence: CO)
  Receive Date: 20130502
  Receipt Date: 20130625
  Transmission Date: 20140414
  Serious: Yes (Death, Hospitalization)
  Sender: FDA-Public Use
  Company Number: CO-ELI_LILLY_AND_COMPANY-CO201304007264

PATIENT
  Age: 60 Year
  Sex: Female

DRUGS (1)
  1. GEMZAR [Suspect]
     Indication: BREAST CANCER METASTATIC
     Dosage: RECOMMENDED DOSE (DETAILS NOT SPECIFIED)
     Route: 042

REACTIONS (5)
  - Malignant neoplasm progression [Fatal]
  - Encephalopathy [Recovered/Resolved]
  - Anxiety [Recovered/Resolved]
  - Headache [Recovered/Resolved]
  - Illusion [Recovered/Resolved]
